FAERS Safety Report 24679007 (Version 1)
Quarter: 2024Q4

REPORT INFORMATION
  Report Type: Spontaneous
  Country: US (occurrence: US)
  Receive Date: 20241129
  Receipt Date: 20241129
  Transmission Date: 20250115
  Serious: Yes (Other)
  Sender: CIPLA
  Company Number: US-CIPLA LTD.-2024US13629

PATIENT

DRUGS (1)
  1. IRINOTECAN [Suspect]
     Active Substance: IRINOTECAN
     Indication: Colon cancer metastatic
     Dosage: UNK
     Route: 042

REACTIONS (3)
  - Urticaria [Recovered/Resolved]
  - Rash erythematous [Recovered/Resolved]
  - Drug hypersensitivity [Unknown]
